FAERS Safety Report 21822903 (Version 1)
Quarter: 2023Q1

REPORT INFORMATION
  Report Type: Report from Study
  Country: US (occurrence: US)
  Receive Date: 20230105
  Receipt Date: 20230105
  Transmission Date: 20230417
  Serious: Yes (Hospitalization)
  Sender: FDA-Public Use
  Company Number: US-002147023-NVSC2023US001244

PATIENT
  Sex: Female
  Weight: 115.65 kg

DRUGS (5)
  1. TREPROSTINIL [Suspect]
     Active Substance: TREPROSTINIL
     Indication: Pulmonary arterial hypertension
     Dosage: 29.5 NG/KG/MIN, CONT (CONCENTRATION: 5 MG/ML)
     Route: 058
     Dates: start: 20220411
  2. TREPROSTINIL [Suspect]
     Active Substance: TREPROSTINIL
     Dosage: 60 NG/KG/MIN, CONT (CONCENTRATION: 10 MG/ML)
     Route: 058
  3. ELIQUIS [Concomitant]
     Active Substance: APIXABAN
     Indication: Product used for unknown indication
     Dosage: UNK
     Route: 065
  4. ADEMPAS [Concomitant]
     Active Substance: RIOCIGUAT
     Indication: Product used for unknown indication
     Dosage: UNK
     Route: 065
  5. OPSUMIT [Concomitant]
     Active Substance: MACITENTAN
     Indication: Product used for unknown indication
     Dosage: UNK
     Route: 065

REACTIONS (2)
  - Fluid retention [Unknown]
  - Peripheral swelling [Unknown]
